FAERS Safety Report 17478680 (Version 1)
Quarter: 2020Q1

REPORT INFORMATION
  Report Type: Spontaneous
  Country: DK (occurrence: DK)
  Receive Date: 20200228
  Receipt Date: 20200228
  Transmission Date: 20200409
  Serious: Yes (Hospitalization)
  Sender: FDA-Public Use
  Company Number: DK-ALLERGAN-2009136US

PATIENT
  Sex: Female
  Weight: 55 kg

DRUGS (1)
  1. BOTOX [Suspect]
     Active Substance: ONABOTULINUMTOXINA
     Indication: HYPERHIDROSIS
     Dosage: STYRKE: 50 IE, DOSIS: BOTOX 50 IE I HVER AXIL - EN GANG
     Route: 030
     Dates: start: 20191105, end: 20191105

REACTIONS (3)
  - Maternal exposure before pregnancy [Unknown]
  - Abortion spontaneous [Recovering/Resolving]
  - Abortion missed [Recovering/Resolving]

NARRATIVE: CASE EVENT DATE: 2020
